FAERS Safety Report 23063470 (Version 3)
Quarter: 2023Q4

REPORT INFORMATION
  Report Type: Spontaneous
  Country: JP (occurrence: JP)
  Receive Date: 20231013
  Receipt Date: 20231121
  Transmission Date: 20240110
  Serious: Yes (Death, Other)
  Sender: FDA-Public Use
  Company Number: JP-HORIZON THERAPEUTICS-HZN-2023-007787

PATIENT

DRUGS (35)
  1. BUPHENYL [Suspect]
     Active Substance: SODIUM PHENYLBUTYRATE
     Indication: Carbamoyl phosphate synthetase deficiency
     Dosage: 500 MG, TID
     Route: 048
     Dates: start: 20130319, end: 20130401
  2. BUPHENYL [Suspect]
     Active Substance: SODIUM PHENYLBUTYRATE
     Indication: Product used for unknown indication
     Dosage: 1000 MG/8 HOURS
     Dates: start: 20130402, end: 20130418
  3. BUPHENYL [Suspect]
     Active Substance: SODIUM PHENYLBUTYRATE
     Dosage: 1500 MG /8 HOURS
     Route: 048
     Dates: start: 20130419, end: 20130508
  4. BUPHENYL [Suspect]
     Active Substance: SODIUM PHENYLBUTYRATE
     Dosage: 2000 MG/8 HOURS
     Route: 048
     Dates: start: 20130509, end: 20130521
  5. BUPHENYL [Suspect]
     Active Substance: SODIUM PHENYLBUTYRATE
     Dosage: 2500 MG /8 HOURS
     Route: 048
     Dates: start: 20130522, end: 20130702
  6. BUPHENYL [Suspect]
     Active Substance: SODIUM PHENYLBUTYRATE
     Dosage: 3000 MG /8 HOURS
     Route: 048
     Dates: start: 20130703, end: 20130730
  7. BUPHENYL [Suspect]
     Active Substance: SODIUM PHENYLBUTYRATE
     Dosage: 3500 MG /8 HOURS
     Route: 048
     Dates: start: 20130731, end: 20130930
  8. BUPHENYL [Suspect]
     Active Substance: SODIUM PHENYLBUTYRATE
     Dosage: 4000 MG /8 HOURS
     Route: 048
     Dates: start: 20131001, end: 20131024
  9. BUPHENYL [Suspect]
     Active Substance: SODIUM PHENYLBUTYRATE
     Dosage: 2000 MG /8 HOURS
     Route: 048
     Dates: start: 20131025, end: 20131107
  10. BUPHENYL [Suspect]
     Active Substance: SODIUM PHENYLBUTYRATE
     Dosage: 1500 MG /8 HOURS
     Route: 048
     Dates: start: 20131108
  11. BUPHENYL [Suspect]
     Active Substance: SODIUM PHENYLBUTYRATE
     Dosage: 2166 MG /8 HOURS
     Route: 048
  12. BUPHENYL [Suspect]
     Active Substance: SODIUM PHENYLBUTYRATE
     Dosage: 2666 MG /8 HOURS
     Route: 048
  13. BUPHENYL [Suspect]
     Active Substance: SODIUM PHENYLBUTYRATE
     Dosage: 5000 MG /8 HOURS
     Route: 048
  14. BUPHENYL [Suspect]
     Active Substance: SODIUM PHENYLBUTYRATE
     Dosage: 6500 MG /8 HOURS
     Route: 048
     Dates: start: 20190118
  15. BUPHENYL [Suspect]
     Active Substance: SODIUM PHENYLBUTYRATE
     Dosage: 6000 MG /8 HOURS
     Route: 048
     Dates: start: 20190119
  16. Argi u [Concomitant]
     Indication: Carbamoyl phosphate synthetase deficiency
     Dosage: 5 G, 1.6 G/8 HOURS
     Route: 048
  17. Argi u [Concomitant]
     Dosage: 9 G/ DAY
     Route: 048
  18. Argi u [Concomitant]
     Dosage: 18 G,  18 G/ DAY
     Route: 048
  19. Argi u [Concomitant]
     Dosage: 12 G, 12 G/ DAY
     Route: 048
  20. Argi u [Concomitant]
     Dosage: 5 G, 5 G/ DAY
     Route: 048
  21. LEVOCARNITINE HYDROCHLORIDE [Concomitant]
     Active Substance: LEVOCARNITINE HYDROCHLORIDE
     Indication: Carbamoyl phosphate synthetase deficiency
     Dosage: 300 MG/ 12HOURS
     Route: 048
  22. LEVOCARNITINE HYDROCHLORIDE [Concomitant]
     Active Substance: LEVOCARNITINE HYDROCHLORIDE
     Dosage: 600 MG, DAY
     Route: 048
  23. LEVOCARNITINE HYDROCHLORIDE [Concomitant]
     Active Substance: LEVOCARNITINE HYDROCHLORIDE
     Dosage: 500 MG, DAY
     Route: 048
  24. LEVOCARNITINE HYDROCHLORIDE [Concomitant]
     Active Substance: LEVOCARNITINE HYDROCHLORIDE
     Dosage: 1000 MG,DAY
     Route: 048
  25. AMIYU blends [Concomitant]
     Indication: Carbamoyl phosphate synthetase deficiency
     Dosage: 2.5 G, /12 HOURS
     Route: 048
  26. AMIYU blends [Concomitant]
     Dosage: 7.5 G, DAY
     Route: 048
  27. PHENOBARBITAL [Concomitant]
     Active Substance: PHENOBARBITAL
     Dosage: 1.8 G/ DAY
     Route: 048
  28. PHENOBARBITAL [Concomitant]
     Active Substance: PHENOBARBITAL
     Dosage: 180 MG/ DAY
     Route: 048
  29. PHENOBARBITAL [Concomitant]
     Active Substance: PHENOBARBITAL
     Dosage: 200 MG/ DAY
     Route: 048
  30. LEVETIRACETAM [Concomitant]
     Active Substance: LEVETIRACETAM
     Dosage: 3000 MG/ DAY
     Route: 048
  31. CITRULLINE [Concomitant]
     Active Substance: CITRULLINE
     Indication: Carbamoyl phosphate synthetase deficiency
     Dosage: 4.5 G/ DAY
     Route: 048
  32. CITRULLINE [Concomitant]
     Active Substance: CITRULLINE
     Dosage: 6.0 G/ DAY
     Route: 048
  33. LAMICTAL [Concomitant]
     Active Substance: LAMOTRIGINE
     Dosage: 400 MG/ DAY
     Route: 048
  34. CARBAMAZEPINE [Concomitant]
     Active Substance: CARBAMAZEPINE
     Dosage: 500 MG/ DAY
     Route: 048
  35. VIMPAT [Concomitant]
     Active Substance: LACOSAMIDE
     Dosage: 500 MG/ DAY
     Route: 048

REACTIONS (2)
  - General physical health deterioration [Fatal]
  - COVID-19 [Unknown]

NARRATIVE: CASE EVENT DATE: 20221228
